FAERS Safety Report 20430619 (Version 3)
Quarter: 2022Q1

REPORT INFORMATION
  Report Type: Report from Study
  Country: US (occurrence: US)
  Receive Date: 20220204
  Receipt Date: 20220302
  Transmission Date: 20220424
  Serious: Yes (Hospitalization, Other)
  Sender: FDA-Public Use
  Company Number: US-BAYER-2022A003193

PATIENT
  Age: 83 Year
  Sex: Female
  Weight: 64.2 kg

DRUGS (18)
  1. ADEMPAS [Suspect]
     Active Substance: RIOCIGUAT
     Indication: Pulmonary arterial hypertension
     Dosage: UNK
  2. ADEMPAS [Suspect]
     Active Substance: RIOCIGUAT
     Indication: Pulmonary arterial hypertension
     Dosage: 2 MG, TID
     Route: 048
     Dates: start: 20210817
  3. ELIQUIS [Concomitant]
     Active Substance: APIXABAN
  4. OXYGEN [Concomitant]
     Active Substance: OXYGEN
  5. ACETAMINOPHEN [Concomitant]
     Active Substance: ACETAMINOPHEN
     Dosage: 500 MG
     Route: 048
  6. ANASTROZOLE [Concomitant]
     Active Substance: ANASTROZOLE
  7. APIXABAN [Concomitant]
     Active Substance: APIXABAN
     Dosage: 5 MG
     Route: 048
  8. CHOLECALCIFEROL [Concomitant]
     Active Substance: CHOLECALCIFEROL
  9. LASIX [Concomitant]
     Active Substance: FUROSEMIDE
  10. LEXAPRO [Concomitant]
     Active Substance: ESCITALOPRAM OXALATE
  11. VITAMINS [Concomitant]
     Active Substance: VITAMINS
  12. OPSUMIT [Concomitant]
     Active Substance: MACITENTAN
  13. POTASSIUM CHLORIDE [Concomitant]
     Active Substance: POTASSIUM CHLORIDE
  14. PROLIA [Concomitant]
     Active Substance: DENOSUMAB
  15. SHINGRIX [Concomitant]
     Active Substance: RECOMBINANT VARICELLA ZOSTER VIRUS (VZV) GLYCOPROTEIN E
  16. SIMVASTATIN [Concomitant]
     Active Substance: SIMVASTATIN
  17. TOPROL XL [Concomitant]
     Active Substance: METOPROLOL SUCCINATE
  18. VITAMIN B12 [Concomitant]
     Active Substance: CYANOCOBALAMIN

REACTIONS (20)
  - Gastrointestinal haemorrhage [Recovering/Resolving]
  - Blood loss anaemia [None]
  - Colon cancer [None]
  - Peripheral swelling [None]
  - Syncope [None]
  - Melaena [None]
  - Adenocarcinoma [None]
  - Malnutrition [None]
  - Anticoagulant therapy [None]
  - Acute respiratory failure [None]
  - Hypoxia [None]
  - Atelectasis [None]
  - Haemoglobin decreased [None]
  - Hypotension [None]
  - Altered state of consciousness [None]
  - Nausea [None]
  - Drug hypersensitivity [None]
  - Faeces discoloured [None]
  - Fatigue [Not Recovered/Not Resolved]
  - Dyspnoea [None]

NARRATIVE: CASE EVENT DATE: 20211201
